FAERS Safety Report 4699184-X (Version None)
Quarter: 2005Q2

REPORT INFORMATION
  Report Type: 
  Country: None (occurrence: None)
  Receive Date: 20050622
  Receipt Date: 20050609
  Transmission Date: 20051028
  Serious: Yes (Death, Hospitalization)
  Sender: FDA-Public Use
  Company Number: 214042

PATIENT
  Age: 83 Year
  Sex: Male

DRUGS (5)
  1. RITUXAN [Suspect]
     Indication: NON-HODGKIN'S LYMPHOMA
     Dosage: 375 MG/M2, INTRAVENOUS
     Route: 042
     Dates: start: 20040615, end: 20041125
  2. PIRARUBICIN (PIRARUBIIN) [Suspect]
     Indication: NON-HODGKIN'S LYMPHOMA
     Dosage: 30 MG, INTRAVENOUS
     Route: 042
     Dates: start: 20040616, end: 20041029
  3. CYCLOPHOSPHAMIDE [Suspect]
     Indication: NON-HODGKIN'S LYMPHOMA
     Dosage: 600 MG, INTRAVENOUS
     Route: 042
     Dates: start: 20040616, end: 20041029
  4. ONCOVIN [Suspect]
     Indication: NON-HODGKIN'S LYMPHOMA
     Dosage: 1 MG, INTRAVENOUS
     Route: 042
     Dates: start: 20040616, end: 20041029
  5. PREDNISONE [Suspect]
     Indication: NON-HODGKIN'S LYMPHOMA
     Dates: start: 20040615, end: 20041102

REACTIONS (5)
  - GENERAL PHYSICAL HEALTH DETERIORATION [None]
  - HEPATIC ATROPHY [None]
  - HEPATIC FAILURE [None]
  - HEPATITIS B [None]
  - THERAPY NON-RESPONDER [None]
